FAERS Safety Report 4379857-9 (Version None)
Quarter: 2004Q2

REPORT INFORMATION
  Report Type: 
  Country: None (occurrence: None)
  Receive Date: 20040616
  Receipt Date: 20040527
  Transmission Date: 20050107
  Serious: Yes (Hospitalization)
  Sender: FDA-Public Use
  Company Number: 000#1#2004-00285

PATIENT
  Age: 25 Year
  Sex: Female

DRUGS (2)
  1. ISOSORBIDE MONONITRATE [Suspect]
     Indication: DRUG TOXICITY
     Dosage: 800 MG (20 MG 40 IN 1 DAY(S)   ORAL
     Route: 048
  2. ISOSORBIDE MONONITRATE [Suspect]
     Indication: SUICIDAL IDEATION
     Dosage: 800 MG (20 MG 40 IN 1 DAY(S)   ORAL
     Route: 048

REACTIONS (7)
  - BLOOD PRESSURE DECREASED [None]
  - HEADACHE [None]
  - HOT FLUSH [None]
  - SINUS ARRHYTHMIA [None]
  - SUICIDE ATTEMPT [None]
  - SUPRAVENTRICULAR EXTRASYSTOLES [None]
  - TACHYCARDIA [None]
